FAERS Safety Report 6108076-0 (Version None)
Quarter: 2009Q1

REPORT INFORMATION
  Report Type: 
  Country: None (occurrence: None)
  Receive Date: 20090305
  Receipt Date: 20090305
  Transmission Date: 20090719
  Serious: Yes (Other)
  Sender: FDA-Public Use
  Company Number: None

PATIENT
  Age: 66 Year
  Sex: Male
  Weight: 108.8633 kg

DRUGS (1)
  1. ROPINIROLE [Suspect]
     Indication: RESTLESS LEGS SYNDROME
     Dosage: 4 MG AT BEDTIME PO
     Route: 048
     Dates: start: 20080808, end: 20090305

REACTIONS (3)
  - ANORGASMIA [None]
  - EJACULATION FAILURE [None]
  - ERECTILE DYSFUNCTION [None]
